FAERS Safety Report 7045545-3 (Version None)
Quarter: 2010Q4

REPORT INFORMATION
  Report Type: 
  Country: None (occurrence: None)
  Receive Date: 20101013
  Receipt Date: 20101013
  Transmission Date: 20110411
  Serious: Yes (Other)
  Sender: FDA-Public Use
  Company Number: None

PATIENT
  Age: 15 Year
  Sex: Male
  Weight: 58 kg

DRUGS (1)
  1. VALPROIC ACID [Suspect]
     Indication: CONVULSION
     Dosage: 375MG 3 X DAY PO
     Route: 048
     Dates: start: 20090420, end: 20090429

REACTIONS (3)
  - CONVULSION [None]
  - PRODUCT QUALITY ISSUE [None]
  - TREATMENT NONCOMPLIANCE [None]
